FAERS Safety Report 20548398 (Version 1)
Quarter: 2022Q1

REPORT INFORMATION
  Report Type: Spontaneous
  Country: US (occurrence: US)
  Receive Date: 20220303
  Receipt Date: 20220303
  Transmission Date: 20220423
  Serious: No
  Sender: FDA-Public Use
  Company Number: US-ALLERGAN-2106122US

PATIENT
  Sex: Female

DRUGS (4)
  1. RESTASIS [Suspect]
     Active Substance: CYCLOSPORINE
     Indication: Dry eye
     Dosage: 4 GTT, BID
  2. Covid Vaccine [Concomitant]
     Dosage: UNK
     Dates: start: 20210217, end: 20210217
  3. unspecified gel eye drops [Concomitant]
     Indication: Dry eye
  4. unspecified medication for [Concomitant]
     Indication: Hypertension

REACTIONS (1)
  - Incorrect dose administered [Unknown]
